FAERS Safety Report 7924064 (Version 5)
Quarter: 2013Q1

REPORT INFORMATION
  Report Type: Spontaneous
  Country: US (occurrence: US)
  Receive Date: 20110502
  Receipt Date: 20130211
  Transmission Date: 20140127
  Serious: Yes (Hospitalization, Other)
  Sender: FDA-Public Use
  Company Number: US-BAYER-2011-036584

PATIENT
  Age: 29 Year
  Sex: Female
  Weight: 86.17 kg

DRUGS (10)
  1. YAZ [Suspect]
     Indication: MENSTRUAL CYCLE MANAGEMENT
     Dosage: UNK
     Dates: start: 20090430, end: 20090526
  2. METFORMIN [Concomitant]
     Indication: DIABETES MELLITUS
     Dosage: 850 MG, BID (TWICE DAILY)
     Route: 048
     Dates: start: 20040430, end: 20080528
  3. PHENTERMINE [Concomitant]
     Indication: WEIGHT DECREASED
     Dosage: 37.5 MG, QD (ONCE DAILY)
     Route: 048
     Dates: start: 200905
  4. HUMAN GROWTH HORMONE, RECOMBINANT [Concomitant]
     Indication: WEIGHT DECREASED
     Dosage: DAILY
     Dates: start: 20090501
  5. VITAMIN B [Concomitant]
     Indication: WEIGHT DECREASED
     Dosage: INJECTION WEEKLY
     Dates: start: 20090523
  6. TYLENOL [Concomitant]
     Indication: PAIN
     Dosage: UNK UNK, PRN
     Route: 048
     Dates: start: 20090528
  7. MEDROXYPROGESTERONE [Concomitant]
     Dosage: 10 MG, UNK
     Route: 048
  8. TYLENOL ARTHRITIS [Concomitant]
     Dosage: 650 MG, PRN
     Route: 048
  9. HCG [Concomitant]
     Indication: WEIGHT DECREASED
  10. VITAMIN B12 (CYANOCOBALAMIN AND ANALOGUES) [Concomitant]

REACTIONS (12)
  - Intracranial venous sinus thrombosis [None]
  - Jugular vein thrombosis [None]
  - Cerebrovascular accident [None]
  - Amnesia [None]
  - Injury [None]
  - Pain [None]
  - Emotional distress [None]
  - Anxiety [None]
  - Migraine [None]
  - Vision blurred [None]
  - Vomiting [None]
  - Headache [None]
